FAERS Safety Report 7108494-8 (Version None)
Quarter: 2010Q4

REPORT INFORMATION
  Report Type: 
  Country: None (occurrence: None)
  Receive Date: 20101117
  Receipt Date: 20101102
  Transmission Date: 20110411
  Serious: Yes (Other)
  Sender: FDA-Public Use
  Company Number: US-ROCHE-718945

PATIENT
  Sex: Female
  Weight: 62.1 kg

DRUGS (12)
  1. ACCUTANE [Suspect]
     Indication: ACNE
     Route: 048
     Dates: start: 19910101, end: 19910701
  2. ACCUTANE [Suspect]
     Dosage: ONE CAPSULE EVERY DAY ALTERNATING EVERY OTHER DAY WITH ONE CAPSULE TWICE A DAY
     Route: 048
     Dates: start: 19990908, end: 20000301
  3. ACCUTANE [Suspect]
     Route: 048
     Dates: start: 19940101
  4. ADVAIR DISKUS 100/50 [Concomitant]
     Dosage: 500/50
  5. CLIMARA [Concomitant]
  6. DIAZEPAM [Concomitant]
  7. FLOVENT [Concomitant]
     Dosage: DOSE: 220 MCG/A
  8. HYDROCODONE BITARTRATE + ACETAMINOPHEN [Concomitant]
  9. MAXALT [Concomitant]
  10. METHADONE HCL [Concomitant]
  11. SINGULAIR [Concomitant]
  12. TRAZODONE HCL [Concomitant]

REACTIONS (20)
  - ANAEMIA [None]
  - ARTHRITIS [None]
  - BACK PAIN [None]
  - COLITIS ULCERATIVE [None]
  - DEPRESSION [None]
  - GASTROINTESTINAL INJURY [None]
  - GASTROOESOPHAGEAL REFLUX DISEASE [None]
  - HAEMORRHOIDS [None]
  - HEADACHE [None]
  - INFLAMMATORY BOWEL DISEASE [None]
  - INSOMNIA [None]
  - INTESTINAL HAEMORRHAGE [None]
  - INTESTINAL OBSTRUCTION [None]
  - MIGRAINE [None]
  - MILIA [None]
  - NAUSEA [None]
  - RECTAL PROLAPSE [None]
  - RECTOCELE [None]
  - RHINITIS [None]
  - VAGINAL PROLAPSE [None]
